FAERS Safety Report 4641692-1 (Version None)
Quarter: 2005Q2

REPORT INFORMATION
  Report Type: 
  Country: None (occurrence: None)
  Receive Date: 20050420
  Receipt Date: 20050407
  Transmission Date: 20051028
  Serious: No
  Sender: FDA-Public Use
  Company Number: 2005-BP-05658BP

PATIENT
  Sex: Female

DRUGS (2)
  1. VIRAMUNE [Suspect]
     Indication: PROPHYLAXIS AGAINST HIV INFECTION
     Dosage: 0.52 ML PO
     Route: 048
     Dates: start: 20011223, end: 20011223
  2. VIRAMUNE [Suspect]
     Indication: VERTICAL INFECTION TRANSMISSION
     Dosage: 0.52 ML PO
     Route: 048
     Dates: start: 20011223, end: 20011223

REACTIONS (3)
  - HAEMOGLOBIN DECREASED [None]
  - NEONATAL DISORDER [None]
  - WHITE BLOOD CELL COUNT INCREASED [None]
